FAERS Safety Report 12612286 (Version 2)
Quarter: 2016Q4

REPORT INFORMATION
  Report Type: Spontaneous
  Country: BE (occurrence: BE)
  Receive Date: 20160801
  Receipt Date: 20161027
  Transmission Date: 20170207
  Serious: Yes (Other)
  Sender: FDA-Public Use
  Company Number: BE-PFIZER INC-2016367462

PATIENT
  Age: 55 Year
  Sex: Male

DRUGS (7)
  1. METHYLPREDNISOLONE SODIUM SUCCINATE. [Suspect]
     Active Substance: METHYLPREDNISOLONE SODIUM SUCCINATE
     Indication: TRANSPLANT REJECTION
     Dosage: 4 MG, DAILY
  2. METHYLPREDNISOLONE SODIUM SUCCINATE. [Suspect]
     Active Substance: METHYLPREDNISOLONE SODIUM SUCCINATE
     Indication: IMMUNOSUPPRESSION
     Dosage: UNK
     Route: 042
  3. SULFAMETHOXAZOLE AND TRIMETHOPRIM [Concomitant]
     Active Substance: SULFAMETHOXAZOLE\TRIMETHOPRIM
     Indication: PSEUDOMONAS INFECTION
     Dosage: UNK
     Route: 048
  4. METFORMIN [Concomitant]
     Active Substance: METFORMIN HYDROCHLORIDE
     Indication: GLUCOSE TOLERANCE IMPAIRED
     Dosage: 500 MG, 2X/DAY
     Route: 048
     Dates: start: 2012
  5. TACROLIMUS. [Suspect]
     Active Substance: TACROLIMUS
     Indication: IMMUNOSUPPRESSION
     Dosage: 0.5 MG, 2X/DAY
  6. MYCOPHENOLATE MOFETIL. [Suspect]
     Active Substance: MYCOPHENOLATE MOFETIL
     Indication: IMMUNOSUPPRESSION
     Dosage: 500 MG, 2X/DAY
  7. CASPOFUNGIN [Concomitant]
     Active Substance: CASPOFUNGIN
     Indication: ASPERGILLUS INFECTION
     Dosage: 50 MG, UNK
     Route: 042
     Dates: start: 2012

REACTIONS (2)
  - Sinusitis bacterial [Unknown]
  - Transplant rejection [Unknown]

NARRATIVE: CASE EVENT DATE: 2012
